FAERS Safety Report 7560481-1 (Version None)
Quarter: 2011Q2

REPORT INFORMATION
  Report Type: 
  Country: None (occurrence: None)
  Receive Date: 20110621
  Receipt Date: 20110613
  Transmission Date: 20111010
  Serious: Yes (Life-Threatening, Hospitalization, Other)
  Sender: FDA-Public Use
  Company Number: US-BRISTOL-MYERS SQUIBB COMPANY-15087455

PATIENT
  Age: 73 Year
  Sex: Female

DRUGS (11)
  1. HYDROCHLOROTHIAZIDE [Concomitant]
     Dates: start: 20080721
  2. SYMBICORT [Concomitant]
     Dates: start: 20080324
  3. PRAVACHOL [Concomitant]
     Dates: start: 20090203
  4. SPIRIVA [Concomitant]
     Dates: start: 20060503
  5. VERELAN [Concomitant]
  6. WARFARIN SODIUM [Suspect]
     Indication: THROMBOSIS PROPHYLAXIS
     Route: 048
     Dates: start: 20070726
  7. ALBUTEROL SULFATE AUTOHALER [Concomitant]
  8. LIPOFLAVONOID [Concomitant]
     Dates: start: 20100209
  9. MAXALT [Concomitant]
  10. PLACEBO [Suspect]
     Indication: THROMBOSIS PROPHYLAXIS
     Route: 048
     Dates: start: 20070726
  11. AMITRIPTYLINE HCL [Concomitant]
     Dates: start: 20091020

REACTIONS (3)
  - SUBDURAL HAEMATOMA [None]
  - CHRONIC OBSTRUCTIVE PULMONARY DISEASE [None]
  - MYOCARDIAL INFARCTION [None]
